FAERS Safety Report 17807439 (Version 4)
Quarter: 2023Q2

REPORT INFORMATION
  Report Type: Spontaneous
  Country: US (occurrence: US)
  Receive Date: 20200520
  Receipt Date: 20230626
  Transmission Date: 20230721
  Serious: Yes (Other)
  Sender: FDA-Public Use
  Company Number: US-GILEAD-2020-0467111

PATIENT
  Age: 73 Year
  Sex: Male

DRUGS (5)
  1. TRUVADA [Suspect]
     Active Substance: EMTRICITABINE\TENOFOVIR DISOPROXIL FUMARATE
     Indication: HIV infection
     Dosage: UNK
     Route: 048
     Dates: start: 2006, end: 2008
  2. ATRIPLA [Suspect]
     Active Substance: EFAVIRENZ\EMTRICITABINE\TENOFOVIR DISOPROXIL FUMARATE
     Indication: HIV infection
     Dosage: UNK
     Route: 048
     Dates: start: 2008, end: 20100907
  3. ATRIPLA [Suspect]
     Active Substance: EFAVIRENZ\EMTRICITABINE\TENOFOVIR DISOPROXIL FUMARATE
     Dosage: UNK
     Route: 048
     Dates: start: 20080515, end: 20100623
  4. BIKTARVY [Concomitant]
     Active Substance: BICTEGRAVIR SODIUM\EMTRICITABINE\TENOFOVIR ALAFENAMIDE FUMARATE
  5. DESCOVY [Concomitant]
     Active Substance: EMTRICITABINE\TENOFOVIR ALAFENAMIDE FUMARATE

REACTIONS (17)
  - Renal cancer [Not Recovered/Not Resolved]
  - Chronic kidney disease [Not Recovered/Not Resolved]
  - Cervical spinal stenosis [Not Recovered/Not Resolved]
  - Renal impairment [Not Recovered/Not Resolved]
  - Intervertebral disc degeneration [Not Recovered/Not Resolved]
  - Tooth loss [Not Recovered/Not Resolved]
  - Arthritis [Unknown]
  - Spinal osteoarthritis [Unknown]
  - Bone density decreased [Unknown]
  - Spinal stenosis [Unknown]
  - Partner stress [Unknown]
  - Renal neoplasm [Not Recovered/Not Resolved]
  - Osteoarthritis [Not Recovered/Not Resolved]
  - Renal cyst [Not Recovered/Not Resolved]
  - Radiculopathy [Not Recovered/Not Resolved]
  - Back pain [Not Recovered/Not Resolved]
  - Sciatica [Not Recovered/Not Resolved]

NARRATIVE: CASE EVENT DATE: 20060101
